FAERS Safety Report 16888920 (Version 1)
Quarter: 2019Q4

REPORT INFORMATION
  Report Type: Spontaneous
  Country: US (occurrence: US)
  Receive Date: 20191007
  Receipt Date: 20191007
  Transmission Date: 20200122
  Serious: No
  Sender: FDA-Public Use
  Company Number: US-JNJFOC-20190934400

PATIENT
  Sex: Male

DRUGS (1)
  1. TYLENOL [Suspect]
     Active Substance: ACETAMINOPHEN
     Indication: ANALGESIC THERAPY
     Dosage: ABOUT 8 UNITS (REVEALED IN EARLIER CASE HE HAS TO TAKE 6 OR 7)
     Route: 048

REACTIONS (1)
  - Incorrect dose administered [Unknown]
